FAERS Safety Report 13215403 (Version 2)
Quarter: 2018Q1

REPORT INFORMATION
  Report Type: Spontaneous
  Country: US (occurrence: US)
  Receive Date: 20170209
  Receipt Date: 20180116
  Transmission Date: 20180508
  Serious: No
  Sender: FDA-Public Use
  Company Number: US-ALLERGAN-1678642US

PATIENT
  Age: 67 Year
  Sex: Female
  Weight: 52.15 kg

DRUGS (9)
  1. TOPIRAMATE. [Concomitant]
     Active Substance: TOPIRAMATE
     Dosage: 100 MG, BID
  2. SUMATRIPTAN. [Concomitant]
     Active Substance: SUMATRIPTAN
     Dosage: 100 MG, PRN
  3. HYDROCHLOROTHIAZIDE. [Concomitant]
     Active Substance: HYDROCHLOROTHIAZIDE
     Dosage: 25 MG, QAM
  4. BOTOX [Suspect]
     Active Substance: ONABOTULINUMTOXINA
     Indication: TORTICOLLIS
     Dosage: 3 INJECTIONS ON EACH SITE, SINGLE
     Route: 030
     Dates: start: 20160611, end: 20160611
  5. CALCIUM [Concomitant]
     Active Substance: CALCIUM
     Dosage: 600 MG, QAM
  6. RISEDRONATE [Concomitant]
     Active Substance: RISEDRONATE SODIUM
     Dosage: 150 MG, Q MONTH
  7. ASPIRIN. [Concomitant]
     Active Substance: ASPIRIN
     Dosage: 500 MG, PRN/USUALLY EVERY 8 HOURS
  8. POT CHLOR ER [Concomitant]
     Dosage: 20 MEQ, BID
  9. PROPRANOLOL [Concomitant]
     Active Substance: PROPRANOLOL HYDROCHLORIDE
     Dosage: 40 MG, BID

REACTIONS (8)
  - Retching [Recovered/Resolved]
  - Paralysis [Recovered/Resolved]
  - Throat tightness [Recovered/Resolved]
  - Choking [Recovered/Resolved]
  - Dysphonia [Recovered/Resolved]
  - Alopecia [Recovered/Resolved]
  - Dysphagia [Recovered/Resolved]
  - Salivary hypersecretion [Recovered/Resolved]

NARRATIVE: CASE EVENT DATE: 201606
